FAERS Safety Report 22239452 (Version 1)
Quarter: 2023Q2

REPORT INFORMATION
  Report Type: Spontaneous
  Country: US (occurrence: None)
  Receive Date: 20230420
  Receipt Date: 20230420
  Transmission Date: 20230721
  Serious: Yes (Disabling)
  Sender: FDA-Public Use
  Company Number: None

PATIENT
  Age: 73 Year
  Sex: Male
  Weight: 90.9 kg

DRUGS (8)
  1. DEXAMETHASONE [Suspect]
     Active Substance: DEXAMETHASONE
  2. lisonipril [Concomitant]
  3. semvastatin [Concomitant]
  4. FLOMAX [Concomitant]
     Active Substance: TAMSULOSIN HYDROCHLORIDE
  5. CYANOCOBALAMIN\DEXPANTHENOL\NIACINAMIDE\PYRIDOXINE HYDROCHLORIDE\RIBOF [Concomitant]
     Active Substance: CYANOCOBALAMIN\DEXPANTHENOL\NIACINAMIDE\PYRIDOXINE HYDROCHLORIDE\RIBOFLAVIN 5^-PHOSPHATE SODIUM\THIA
  6. VITAMINS [Concomitant]
     Active Substance: VITAMINS
  7. ASCORBIC ACID [Concomitant]
     Active Substance: ASCORBIC ACID
  8. Vitamins D [Concomitant]

REACTIONS (5)
  - Ankle operation [None]
  - Nerve injury [None]
  - Post procedural complication [None]
  - Gait disturbance [None]
  - Impaired driving ability [None]

NARRATIVE: CASE EVENT DATE: 20210430
